FAERS Safety Report 18518500 (Version 2)
Quarter: 2022Q2

REPORT INFORMATION
  Report Type: Spontaneous
  Country: DE (occurrence: DE)
  Receive Date: 20201118
  Receipt Date: 20220525
  Transmission Date: 20220720
  Serious: Yes (Life-Threatening, Hospitalization, Disabling, Other)
  Sender: FDA-Public Use
  Company Number: DE-DR. FALK PHARMA GMBH-SA-346-20

PATIENT
  Sex: Female
  Weight: 70 kg

DRUGS (2)
  1. MESALAMINE [Suspect]
     Active Substance: MESALAMINE
     Indication: Colitis ulcerative
     Dosage: 1000 MG, QD
     Route: 054
     Dates: start: 20200904, end: 20201012
  2. PREDNISOLONE [Concomitant]
     Active Substance: PREDNISOLONE
     Indication: Product used for unknown indication
     Dosage: UNK
     Dates: start: 202009

REACTIONS (5)
  - Toxic epidermal necrolysis [Recovering/Resolving]
  - Off label use [Unknown]
  - Skin exfoliation [Unknown]
  - Blister [Unknown]
  - Rash [Unknown]

NARRATIVE: CASE EVENT DATE: 20201001
